FAERS Safety Report 7666241-5 (Version None)
Quarter: 2011Q3

REPORT INFORMATION
  Report Type: 
  Country: None (occurrence: None)
  Receive Date: 20110806
  Receipt Date: 20110328
  Transmission Date: 20111222
  Serious: No
  Sender: FDA-Public Use
  Company Number: US-ABBOTT-11P-163-0714676-00

PATIENT
  Sex: Male
  Weight: 85.352 kg

DRUGS (5)
  1. UNKNOWN BP [Concomitant]
     Indication: PRODUCT USED FOR UNKNOWN INDICATION
  2. UNKNOWN BP [Concomitant]
  3. NIASPAN [Suspect]
  4. NIASPAN [Suspect]
     Indication: BLOOD CHOLESTEROL
  5. UNKNOWN BP [Concomitant]

REACTIONS (2)
  - MUSCULOSKELETAL PAIN [None]
  - NECK PAIN [None]
